FAERS Safety Report 7381197-0 (Version None)
Quarter: 2011Q1

REPORT INFORMATION
  Report Type: 
  Country: None (occurrence: None)
  Receive Date: 20110324
  Receipt Date: 20110324
  Transmission Date: 20110831
  Serious: Yes (Disabling)
  Sender: FDA-Public Use
  Company Number: None

PATIENT
  Age: 58 Year
  Sex: Female
  Weight: 73.0291 kg

DRUGS (1)
  1. LEVAQUIN [Suspect]
     Indication: PNEUMONIA
     Dosage: LESS THAN ONE DOSE TAKEN ONCE PO
     Route: 048
     Dates: start: 20110318, end: 20110318

REACTIONS (2)
  - VOMITING [None]
  - TENDONITIS [None]
